FAERS Safety Report 17544769 (Version 1)
Quarter: 2020Q1

REPORT INFORMATION
  Report Type: Spontaneous
  Country: FR (occurrence: FR)
  Receive Date: 20200316
  Receipt Date: 20200316
  Transmission Date: 20200409
  Serious: Yes (Hospitalization)
  Sender: FDA-Public Use
  Company Number: FR-ACCORD-175564

PATIENT
  Age: 26 Year
  Sex: Male
  Weight: 85 kg

DRUGS (3)
  1. LAMALINE (ATROPA BELLADONNA EXTRACT\CAFFEINE\PAPAVER SOMNIFERUM TINCTURE\PARACETAMOL) [Interacting]
     Active Substance: ACETAMINOPHEN\BELLADONNA LEAF\CAFFEINE\OPIUM
     Route: 048
     Dates: start: 20200123
  2. QUETIAPINE. [Interacting]
     Active Substance: QUETIAPINE
     Route: 048
     Dates: start: 20200123
  3. DIAZEPAM. [Suspect]
     Active Substance: DIAZEPAM
     Route: 048
     Dates: start: 20200123

REACTIONS (4)
  - Suicide attempt [Unknown]
  - Tachycardia [Recovered/Resolved]
  - Hypotension [Recovered/Resolved]
  - Drug interaction [Unknown]

NARRATIVE: CASE EVENT DATE: 20200123
